FAERS Safety Report 21596352 (Version 1)
Quarter: 2022Q4

REPORT INFORMATION
  Report Type: Report from Study
  Country: IN (occurrence: IN)
  Receive Date: 20221115
  Receipt Date: 20221115
  Transmission Date: 20230113
  Serious: Yes (Hospitalization)
  Sender: FDA-Public Use
  Company Number: IN-MYLANLABS-2022M1124373

PATIENT
  Age: 38 Year
  Sex: Male

DRUGS (7)
  1. BORTEZOMIB [Suspect]
     Active Substance: BORTEZOMIB
     Indication: Immunosuppressant drug therapy
     Dosage: 1.3 MILLIGRAM/SQ. METER (FOUR DOSES)
     Route: 065
  2. TACROLIMUS [Suspect]
     Active Substance: TACROLIMUS
     Indication: Immunosuppressant drug therapy
     Dosage: UNK
     Route: 065
  3. MYCOPHENOLATE MOFETIL [Suspect]
     Active Substance: MYCOPHENOLATE MOFETIL
     Indication: Immunosuppressant drug therapy
     Dosage: 1 GRAM, BID
     Route: 065
  4. PREDNISOLONE [Suspect]
     Active Substance: PREDNISOLONE
     Indication: Immunosuppressant drug therapy
     Dosage: 30 MILLIGRAM, QD
     Route: 065
  5. PREDNISOLONE [Suspect]
     Active Substance: PREDNISOLONE
     Dosage: 7.5 MILLIGRAM, QD (TAPERED TO 7.5 MG/DAY BY 6TH WEEK)
     Route: 065
  6. PRIVIGEN [Suspect]
     Active Substance: HUMAN IMMUNOGLOBULIN G
     Indication: Immunosuppressant drug therapy
     Dosage: 100 MILLIGRAM/KILOGRAM
     Route: 042
  7. THYMOCYTE IMMUNE GLOBULIN NOS [Suspect]
     Active Substance: THYMOCYTE IMMUNE GLOBULIN NOS
     Indication: Immunosuppressant drug therapy
     Dosage: 1.5 MILLIGRAM/KILOGRAM (FIVE DOSES)
     Route: 065

REACTIONS (1)
  - Drug ineffective [Unknown]
